FAERS Safety Report 6102697-7 (Version None)
Quarter: 2009Q1

REPORT INFORMATION
  Report Type: 
  Country: None (occurrence: None)
  Receive Date: 20090304
  Receipt Date: 20070530
  Transmission Date: 20090719
  Serious: Yes (Other)
  Sender: FDA-Public Use
  Company Number: B0472871A

PATIENT
  Age: 75 Year
  Sex: Female

DRUGS (1)
  1. ROPINIROLE [Suspect]
     Indication: RESTLESS LEGS SYNDROME
     Dosage: .5MG PER DAY

REACTIONS (1)
  - SLEEP ATTACKS [None]
